FAERS Safety Report 7156438-5 (Version None)
Quarter: 2010Q4

REPORT INFORMATION
  Report Type: 
  Country: None (occurrence: None)
  Receive Date: 20101214
  Receipt Date: 20101206
  Transmission Date: 20110411
  Serious: Yes (Death, Hospitalization)
  Sender: FDA-Public Use
  Company Number: TW-ROCHE-746444

PATIENT
  Sex: Male

DRUGS (2)
  1. PEGASYS [Suspect]
     Indication: HEPATITIS C
     Route: 065
     Dates: start: 20100901
  2. ROBATROL [Concomitant]
     Indication: HEPATITIS C
     Dates: start: 20100901

REACTIONS (2)
  - ROAD TRAFFIC ACCIDENT [None]
  - SUBDURAL HAEMORRHAGE [None]
